FAERS Safety Report 24116030 (Version 1)
Quarter: 2024Q3

REPORT INFORMATION
  Report Type: Spontaneous
  Country: US (occurrence: US)
  Receive Date: 20240722
  Receipt Date: 20240722
  Transmission Date: 20241017
  Serious: Yes (Hospitalization, Other)
  Sender: UCB
  Company Number: US-UCBSA-2024036227

PATIENT
  Sex: Female
  Weight: 122.45 kg

DRUGS (3)
  1. BIMZELX [Suspect]
     Active Substance: BIMEKIZUMAB-BKZX
     Indication: Psoriasis
     Dosage: 320 MILLIGRAM PER MILLILITRE, EV 4 WEEKS (WEEK 12, WEEK 16 + THEN WEEK 8 THEREAFTER)
     Route: 058
  2. JARDIANCE [Concomitant]
     Active Substance: EMPAGLIFLOZIN
     Indication: Product used for unknown indication
     Dosage: 25 MILLIGRAM, ONCE DAILY (QD)
     Route: 048
  3. LYRICA [Concomitant]
     Active Substance: PREGABALIN
     Indication: Product used for unknown indication
     Dosage: 75 MILLIGRAM, 2X/DAY (BID)

REACTIONS (8)
  - Spinal operation [Recovered/Resolved]
  - Post procedural complication [Unknown]
  - Spinal cord oedema [Unknown]
  - Staphylococcal infection [Unknown]
  - Psoriasis [Unknown]
  - Carpal tunnel syndrome [Unknown]
  - Intentional dose omission [Unknown]
  - Therapeutic response shortened [Unknown]

NARRATIVE: CASE EVENT DATE: 20240101
